FAERS Safety Report 21326406 (Version 1)
Quarter: 2022Q3

REPORT INFORMATION
  Report Type: Spontaneous
  Country: US (occurrence: US)
  Receive Date: 20220913
  Receipt Date: 20220913
  Transmission Date: 20221027
  Serious: Yes (Other)
  Sender: FDA-Public Use
  Company Number: US-NOVOPROD-955615

PATIENT
  Sex: Male

DRUGS (1)
  1. NOVOLOG MIX 70/30 [Suspect]
     Active Substance: INSULIN ASPART
     Indication: Type 2 diabetes mellitus
     Dosage: 14 UNITS MORNING /10 UNITS
     Route: 058

REACTIONS (8)
  - Blindness [Not Recovered/Not Resolved]
  - Glaucoma [Unknown]
  - Neuropathy peripheral [Not Recovered/Not Resolved]
  - Lethargy [Unknown]
  - Hyperhidrosis [Not Recovered/Not Resolved]
  - Retching [Not Recovered/Not Resolved]
  - Hiccups [Not Recovered/Not Resolved]
  - Cough [Not Recovered/Not Resolved]
